FAERS Safety Report 5755306-0 (Version None)
Quarter: 2008Q2

REPORT INFORMATION
  Report Type: 
  Country: None (occurrence: None)
  Receive Date: 20080602
  Receipt Date: 20080526
  Transmission Date: 20081010
  Serious: Yes (Hospitalization)
  Sender: FDA-Public Use
  Company Number: AU-AMGEN-US277411

PATIENT
  Sex: Male

DRUGS (7)
  1. ENBREL [Suspect]
     Indication: RHEUMATOID ARTHRITIS
     Route: 058
     Dates: start: 20070703
  2. ENBREL [Suspect]
     Dosage: UNKNOWN
     Route: 058
     Dates: start: 20080501
  3. MS CONTIN [Concomitant]
     Indication: BACK PAIN
     Dosage: 120 MG DAILY
     Route: 048
  4. PREDNISOLONE [Concomitant]
     Indication: ARTHRITIS
     Dosage: 25 MG DAILY
     Route: 048
  5. NEXIUM [Concomitant]
     Dosage: UNKNOWN
     Route: 048
  6. ENDONE [Concomitant]
     Indication: PAIN
     Dosage: 10 MG DAILY
     Route: 048
  7. FUROSEMIDE [Concomitant]
     Dosage: 40 MG DAILY
     Route: 048

REACTIONS (1)
  - PANCREATITIS ACUTE [None]
